FAERS Safety Report 8021954-0 (Version None)
Quarter: 2011Q4

REPORT INFORMATION
  Report Type: 
  Country: None (occurrence: None)
  Receive Date: 20111230
  Receipt Date: 20111214
  Transmission Date: 20120403
  Serious: Yes (Hospitalization, Other)
  Sender: FDA-Public Use
  Company Number: 2011SP058707

PATIENT
  Sex: Male

DRUGS (3)
  1. PEG-INTRON [Suspect]
     Indication: HEPATITIS C
     Dates: start: 20111107, end: 20111213
  2. RIBAVIRIN [Suspect]
     Indication: HEPATITIS C
     Dates: start: 20111107, end: 20111213
  3. INCIVEK [Suspect]
     Indication: HEPATITIS C
     Dates: start: 20111107, end: 20111213

REACTIONS (2)
  - PULMONARY THROMBOSIS [None]
  - MUSCULOSKELETAL PAIN [None]
